FAERS Safety Report 4966841-7 (Version None)
Quarter: 2006Q2

REPORT INFORMATION
  Report Type: 
  Country: None (occurrence: None)
  Receive Date: 20060407
  Receipt Date: 20050829
  Transmission Date: 20061013
  Serious: Yes (Hospitalization, Other)
  Sender: FDA-Public Use
  Company Number: US-MERCK-0508USA04721

PATIENT
  Age: 61 Year
  Sex: Female
  Weight: 77 kg

DRUGS (2)
  1. VIOXX [Suspect]
     Indication: ARTHRITIS
     Route: 048
     Dates: start: 19990712, end: 20011112
  2. VIOXX [Suspect]
     Route: 048
     Dates: start: 19990712, end: 20011112

REACTIONS (5)
  - ARTHROPATHY [None]
  - ASTHENIA [None]
  - BONE PAIN [None]
  - GASTRITIS [None]
  - ISCHAEMIC STROKE [None]
